FAERS Safety Report 7787159-3 (Version None)
Quarter: 2011Q3

REPORT INFORMATION
  Report Type: 
  Country: None (occurrence: None)
  Receive Date: 20110929
  Receipt Date: 20110919
  Transmission Date: 20111222
  Serious: Yes (Death, Other)
  Sender: FDA-Public Use
  Company Number: US-BAXTER-2011BH027238

PATIENT
  Age: 67 Year
  Sex: Female
  Weight: 95 kg

DRUGS (2)
  1. BREVIBLOC [Suspect]
     Indication: TACHYCARDIA
     Route: 042
     Dates: start: 20110820, end: 20110820
  2. LEVOTHYROXINE [Concomitant]
     Indication: PRODUCT USED FOR UNKNOWN INDICATION
     Route: 065

REACTIONS (4)
  - HYPOTENSION [None]
  - SEPTIC SHOCK [None]
  - CONDITION AGGRAVATED [None]
  - BRADYCARDIA [None]
